FAERS Safety Report 17689787 (Version 1)
Quarter: 2020Q2

REPORT INFORMATION
  Report Type: Report from Study
  Country: IT (occurrence: IT)
  Receive Date: 20200421
  Receipt Date: 20200421
  Transmission Date: 20200714
  Serious: Yes (Hospitalization)
  Sender: FDA-Public Use
  Company Number: IT-TEVA-2020-IT-1225855

PATIENT
  Age: 16 Year
  Sex: Female

DRUGS (3)
  1. FLUOXETINE [Suspect]
     Active Substance: FLUOXETINE HYDROCHLORIDE
     Indication: SUICIDE ATTEMPT
     Dosage: 28 DF
     Route: 048
     Dates: start: 20190816, end: 20190816
  2. PORTOLAC 66,67 G/100 ML SCIROPPO [Suspect]
     Active Substance: LACTITOL
     Indication: SUICIDE ATTEMPT
     Dosage: 20 ML
     Route: 048
     Dates: start: 20190816, end: 20190816
  3. QUETIAPINE FUMARATE. [Suspect]
     Active Substance: QUETIAPINE FUMARATE
     Indication: SUICIDE ATTEMPT
     Dosage: 59 DF
     Route: 048
     Dates: start: 20190816, end: 20190816

REACTIONS (3)
  - Suicide attempt [Recovering/Resolving]
  - Coma [Recovering/Resolving]
  - Drug abuse [Recovering/Resolving]

NARRATIVE: CASE EVENT DATE: 20190816
